FAERS Safety Report 6183744-3 (Version None)
Quarter: 2009Q2

REPORT INFORMATION
  Report Type: 
  Country: None (occurrence: None)
  Receive Date: 20090508
  Receipt Date: 20090427
  Transmission Date: 20091009
  Serious: Yes (Other)
  Sender: FDA-Public Use
  Company Number: US-PFIZER INC-2009207852

PATIENT
  Sex: Female
  Weight: 54.431 kg

DRUGS (4)
  1. CHANTIX [Suspect]
     Indication: SMOKING CESSATION THERAPY
     Dosage: UNK
     Route: 048
     Dates: start: 20090201
  2. ALCOHOL [Suspect]
     Dosage: UNK
  3. LISINOPRIL [Concomitant]
     Dosage: UNK
  4. MICROGESTIN 1.5/30 [Concomitant]
     Dosage: UNK

REACTIONS (3)
  - AGGRESSION [None]
  - AGITATION [None]
  - ANGER [None]
